FAERS Safety Report 7712291-X (Version None)
Quarter: 2011Q3

REPORT INFORMATION
  Report Type: 
  Country: None (occurrence: None)
  Receive Date: 20110826
  Receipt Date: 20110816
  Transmission Date: 20111222
  Serious: Yes (Other)
  Sender: FDA-Public Use
  Company Number: US-KINGPHARMUSA00001-K201100969

PATIENT
  Age: 24 Year
  Sex: Female

DRUGS (1)
  1. SONATA [Suspect]
     Dosage: SINGLE
     Route: 048
     Dates: start: 20080101, end: 20080101

REACTIONS (2)
  - AMNESIA [None]
  - VICTIM OF SEXUAL ABUSE [None]
